FAERS Safety Report 22033651 (Version 2)
Quarter: 2025Q4

REPORT INFORMATION
  Report Type: Spontaneous
  Country: JP (occurrence: JP)
  Receive Date: 20230224
  Receipt Date: 20251119
  Transmission Date: 20260118
  Serious: Yes (Other)
  Sender: ALEXION PHARMACEUTICALS
  Company Number: 2023A041348

PATIENT
  Age: 66 Year
  Sex: Male

DRUGS (2)
  1. OSIMERTINIB [Suspect]
     Active Substance: OSIMERTINIB
     Indication: Lung adenocarcinoma
     Dosage: 80 MILLIGRAM, QD
     Dates: start: 201905
  2. GEFITINIB [Suspect]
     Active Substance: GEFITINIB
     Indication: Lung adenocarcinoma
     Dosage: 250 MILLIGRAM, QD
     Dates: start: 201801

REACTIONS (5)
  - Embolism venous [Unknown]
  - Metastases to lung [Unknown]
  - Pulmonary embolism [Unknown]
  - Pleural effusion [Unknown]
  - EGFR gene mutation [Unknown]
